FAERS Safety Report 12993982 (Version 3)
Quarter: 2016Q4

REPORT INFORMATION
  Report Type: Spontaneous
  Country: JP (occurrence: JP)
  Receive Date: 20161202
  Receipt Date: 20161221
  Transmission Date: 20170207
  Serious: Yes (Life-Threatening, Hospitalization)
  Sender: FDA-Public Use
  Company Number: JP-ABBVIE-16P-087-1794247-00

PATIENT
  Age: 69 Year
  Sex: Female

DRUGS (5)
  1. VIEKIRAX [Suspect]
     Active Substance: OMBITASVIR\PARITAPREVIR\RITONAVIR
     Route: 048
     Dates: start: 20161124, end: 20161128
  2. LOSARTAN POTASSIUM. [Concomitant]
     Active Substance: LOSARTAN POTASSIUM
     Indication: HYPERTENSION
     Route: 065
     Dates: start: 20161105
  3. VIEKIRAX [Suspect]
     Active Substance: OMBITASVIR\PARITAPREVIR\RITONAVIR
     Indication: HEPATITIS C
     Route: 048
     Dates: start: 20161005, end: 20161118
  4. VIEKIRAX [Suspect]
     Active Substance: OMBITASVIR\PARITAPREVIR\RITONAVIR
     Route: 048
     Dates: start: 20161121, end: 20161123
  5. MAGNESIUM OXIDE. [Concomitant]
     Active Substance: MAGNESIUM OXIDE
     Indication: CONSTIPATION
     Route: 065
     Dates: start: 20161123

REACTIONS (8)
  - Cerebral haemorrhage [Recovered/Resolved]
  - Urinary incontinence [Not Recovered/Not Resolved]
  - Memory impairment [Unknown]
  - Depressed level of consciousness [Unknown]
  - Oropharyngeal pain [Unknown]
  - Platelet count decreased [Unknown]
  - Odynophagia [Unknown]
  - Tonsillitis [Recovered/Resolved]

NARRATIVE: CASE EVENT DATE: 20161115
